FAERS Safety Report 6906212-7 (Version None)
Quarter: 2010Q3

REPORT INFORMATION
  Report Type: 
  Country: None (occurrence: None)
  Receive Date: 20100804
  Receipt Date: 20100728
  Transmission Date: 20110219
  Serious: Yes (Hospitalization)
  Sender: FDA-Public Use
  Company Number: US-PERRIGO-10US011711

PATIENT
  Age: 26 Year
  Sex: Male
  Weight: 95.238 kg

DRUGS (1)
  1. ACETAMINOPHEN [Suspect]
     Indication: INTENTIONAL OVERDOSE
     Dosage: 50000 MG, SINGLE
     Route: 048
     Dates: start: 20100728, end: 20100728

REACTIONS (1)
  - INTENTIONAL OVERDOSE [None]
